FAERS Safety Report 10204972 (Version 1)
Quarter: 2014Q2

REPORT INFORMATION
  Report Type: Spontaneous
  Country: US (occurrence: US)
  Receive Date: 20140529
  Receipt Date: 20140529
  Transmission Date: 20141212
  Serious: Yes (Other)
  Sender: FDA-Public Use
  Company Number: CHPA2014US007211

PATIENT
  Sex: 0

DRUGS (1)
  1. EXCEDRIN UNKNOWN [Suspect]
     Route: 065

REACTIONS (1)
  - Dependence [Unknown]
